FAERS Safety Report 8620116-3 (Version None)
Quarter: 2012Q3

REPORT INFORMATION
  Report Type: 
  Country: None (occurrence: None)
  Receive Date: 20120824
  Receipt Date: 20120816
  Transmission Date: 20120928
  Serious: Yes (Hospitalization)
  Sender: FDA-Public Use
  Company Number: FR-ABBOTT-12P-056-0969810-00

PATIENT
  Sex: Male

DRUGS (7)
  1. BACTRIM [Suspect]
     Indication: PNEUMOCYSTIS JIROVECI PNEUMONIA
     Route: 048
     Dates: start: 20120612, end: 20120705
  2. SULFADIAZINE [Suspect]
     Indication: CEREBRAL TOXOPLASMOSIS
     Route: 048
     Dates: start: 20120618, end: 20120709
  3. BACTRIM [Suspect]
     Indication: PROPHYLAXIS
  4. COMBIVIR [Suspect]
     Indication: HIV INFECTION
     Dates: start: 20120627, end: 20120704
  5. NORVIR [Suspect]
     Indication: HIV INFECTION
     Route: 048
     Dates: start: 20120627, end: 20120704
  6. PREZISTA [Suspect]
     Indication: HIV INFECTION
     Route: 048
     Dates: start: 20120627, end: 20120704
  7. FLUCONAZOLE [Suspect]
     Indication: OESOPHAGEAL CANDIDIASIS
     Route: 048
     Dates: start: 20120608, end: 20120630

REACTIONS (7)
  - DRUG HYPERSENSITIVITY [None]
  - CYTOMEGALOVIRUS CHORIORETINITIS [None]
  - DYSPHAGIA [None]
  - MYOCARDITIS [None]
  - STEVENS-JOHNSON SYNDROME [None]
  - CONJUNCTIVITIS [None]
  - DRUG RASH WITH EOSINOPHILIA AND SYSTEMIC SYMPTOMS [None]
